FAERS Safety Report 7345278-X (Version None)
Quarter: 2011Q1

REPORT INFORMATION
  Report Type: 
  Country: None (occurrence: None)
  Receive Date: 20110310
  Receipt Date: 20100908
  Transmission Date: 20110831
  Serious: Yes (Hospitalization)
  Sender: FDA-Public Use
  Company Number: US-BAYER-201023300NA

PATIENT
  Sex: Female
  Weight: 100.23 kg

DRUGS (8)
  1. YAZ [Suspect]
     Indication: MENSTRUAL CYCLE MANAGEMENT
     Dosage: 1 DF, QD
     Route: 048
     Dates: start: 20080101, end: 20080301
  2. TRIAMTERENE AND HYDROCHLOROTHIAZIDE [Concomitant]
  3. DICLOFENAC POTASSIUM [Concomitant]
     Dosage: 50 MG, UNK
  4. YASMIN [Suspect]
     Indication: PRODUCT USED FOR UNKNOWN INDICATION
     Route: 048
  5. METHYLPREDNISOLONE ACETATE [Concomitant]
     Dosage: 4 MG, UNK
  6. SINGULAIR [Concomitant]
     Dosage: 10 MG, UNK
  7. FEXOFENADINE HCL [Concomitant]
  8. IBUPROFEN [Concomitant]
     Dosage: UNK UNK, PRN

REACTIONS (5)
  - INJURY [None]
  - DEEP VEIN THROMBOSIS [None]
  - LOSS OF CONSCIOUSNESS [None]
  - DYSPNOEA [None]
  - PULMONARY EMBOLISM [None]
